FAERS Safety Report 16668121 (Version 1)
Quarter: 2019Q3

REPORT INFORMATION
  Report Type: Spontaneous
  Country: US (occurrence: US)
  Receive Date: 20190802
  Receipt Date: 20190802
  Transmission Date: 20191004
  Serious: Yes (Death)
  Sender: FDA-Public Use
  Company Number: None

PATIENT
  Age: 38 Year
  Sex: Female

DRUGS (11)
  1. SYMBICORT AER 160-4.5 [Concomitant]
  2. PREDNISONE 10 MG [Concomitant]
     Active Substance: PREDNISONE
  3. MONTELUKAST TAB 10 MG [Concomitant]
  4. IPRATROPIUM/SOL ALBUTER [Concomitant]
  5. BUPREN/NALOX SUB 8-2 MG [Concomitant]
  6. XOLAIR [Suspect]
     Active Substance: OMALIZUMAB
     Indication: ASTHMA
     Dosage: ?          OTHER FREQUENCY:EVERY 2 WEEKS;?
     Route: 058
  7. TUDORZA PRES AER 400/ACT [Concomitant]
  8. XOLAIR [Suspect]
     Active Substance: OMALIZUMAB
     Indication: ASTHMA
     Dosage: ?          OTHER FREQUENCY:EVERY 2 WEEKS;?
     Route: 058
  9. THEOPHYLLINE TAB 300 MG ER [Concomitant]
  10. ADDERALL TAB 20 MG [Concomitant]
  11. PREDNISONE TAB 20 MG [Concomitant]

REACTIONS (1)
  - Death [None]
